FAERS Safety Report 5332321-2 (Version None)
Quarter: 2007Q2

REPORT INFORMATION
  Report Type: 
  Country: None (occurrence: None)
  Receive Date: 20070523
  Receipt Date: 20070521
  Transmission Date: 20071010
  Serious: Yes (Other)
  Sender: FDA-Public Use
  Company Number: A0354699B

PATIENT
  Age: 2 Day
  Sex: Female

DRUGS (4)
  1. PAROXETINE HYDROCHLORIDE [Suspect]
     Indication: PANIC DISORDER
     Dosage: 20MG PER DAY
     Dates: start: 20020101, end: 20061101
  2. PAXIL [Suspect]
     Indication: PANIC DISORDER
     Dosage: 20MG PER DAY
     Dates: start: 19960101, end: 20020101
  3. XANAX [Concomitant]
  4. PROCARDIA [Concomitant]

REACTIONS (4)
  - CONVULSION [None]
  - DRUG EXPOSURE DURING PREGNANCY [None]
  - DRUG EXPOSURE VIA BREAST MILK [None]
  - SUPRAVENTRICULAR TACHYCARDIA [None]
